FAERS Safety Report 5805362-6 (Version None)
Quarter: 2008Q3

REPORT INFORMATION
  Report Type: 
  Country: None (occurrence: None)
  Receive Date: 20080702
  Receipt Date: 20070606
  Transmission Date: 20090109
  Serious: Yes (Other)
  Sender: FDA-Public Use
  Company Number: HQWYE549208JUN07

PATIENT
  Age: 72 Year
  Sex: Female
  Weight: 59.02 kg

DRUGS (4)
  1. ADVIL [Suspect]
     Indication: MYALGIA
     Dosage: 2 TABLETS EVERY FOUR HOURS, ORAL
     Route: 048
     Dates: start: 20070501, end: 20070602
  2. ADVIL [Suspect]
     Indication: PAIN
     Dosage: 2 TABLETS EVERY FOUR HOURS, ORAL
     Route: 048
     Dates: start: 20070501, end: 20070602
  3. ZANTAC [Concomitant]
  4. LEVOTHYROXINE SODIUM [Concomitant]

REACTIONS (2)
  - FUNGAL INFECTION [None]
  - RASH GENERALISED [None]
